FAERS Safety Report 12994246 (Version 1)
Quarter: 2016Q4

REPORT INFORMATION
  Report Type: Spontaneous
  Country: US (occurrence: US)
  Receive Date: 20161202
  Receipt Date: 20161202
  Transmission Date: 20170207
  Serious: Yes (Hospitalization)
  Sender: FDA-Public Use
  Company Number: None

PATIENT
  Age: 51 Year
  Sex: Male
  Weight: 109.2 kg

DRUGS (16)
  1. FENTANYL. [Suspect]
     Active Substance: FENTANYL
     Indication: PREOPERATIVE CARE
     Dosage: ?          OTHER FREQUENCY:TWICE;?
     Route: 042
     Dates: start: 20161129, end: 20161129
  2. VALIUM [Suspect]
     Active Substance: DIAZEPAM
     Indication: CATHETERISATION CARDIAC
     Dosage: ?          OTHER FREQUENCY:ONCE;?
     Route: 048
     Dates: start: 20161129, end: 20161129
  3. FENTANYL. [Suspect]
     Active Substance: FENTANYL
     Indication: SEDATION
     Dosage: ?          OTHER FREQUENCY:TWICE;?
     Route: 042
     Dates: start: 20161129, end: 20161129
  4. CYANOCOBALAMIN. [Concomitant]
     Active Substance: CYANOCOBALAMIN
  5. TOUJEO [Concomitant]
     Active Substance: INSULIN GLARGINE
  6. ZOLOFT [Concomitant]
     Active Substance: SERTRALINE HYDROCHLORIDE
  7. VALIUM [Suspect]
     Active Substance: DIAZEPAM
     Indication: SEDATION
     Dosage: ?          OTHER FREQUENCY:ONCE;?
     Route: 048
     Dates: start: 20161129, end: 20161129
  8. VALIUM [Suspect]
     Active Substance: DIAZEPAM
     Indication: POSTOPERATIVE CARE
     Dosage: ?          OTHER FREQUENCY:ONCE;?
     Route: 048
     Dates: start: 20161129, end: 20161129
  9. VIAGRA [Concomitant]
     Active Substance: SILDENAFIL CITRATE
  10. TINACTIN [Concomitant]
     Active Substance: TOLNAFTATE
  11. FENTANYL. [Suspect]
     Active Substance: FENTANYL
     Indication: POSTOPERATIVE CARE
     Dosage: ?          OTHER FREQUENCY:TWICE;?
     Route: 042
     Dates: start: 20161129, end: 20161129
  12. HUMALOG [Concomitant]
     Active Substance: INSULIN LISPRO
  13. FENTANYL. [Suspect]
     Active Substance: FENTANYL
     Indication: CATHETERISATION CARDIAC
     Dosage: ?          OTHER FREQUENCY:TWICE;?
     Route: 042
     Dates: start: 20161129, end: 20161129
  14. VALIUM [Suspect]
     Active Substance: DIAZEPAM
     Indication: PREOPERATIVE CARE
     Dosage: ?          OTHER FREQUENCY:ONCE;?
     Route: 048
     Dates: start: 20161129, end: 20161129
  15. ALPRAZOLAM. [Concomitant]
     Active Substance: ALPRAZOLAM
  16. THERAGRAN [Concomitant]
     Active Substance: VITAMINS

REACTIONS (1)
  - Delirium [None]

NARRATIVE: CASE EVENT DATE: 20161129
